FAERS Safety Report 7316281-0 (Version None)
Quarter: 2011Q1

REPORT INFORMATION
  Report Type: 
  Country: None (occurrence: None)
  Receive Date: 20110225
  Receipt Date: 20110214
  Transmission Date: 20110831
  Serious: Yes (Hospitalization)
  Sender: FDA-Public Use
  Company Number: US-CELGENEUS-163-21880-11011945

PATIENT
  Sex: Male

DRUGS (9)
  1. METOPROLOL SUCCINATE [Concomitant]
     Indication: HYPERTENSION
     Route: 048
  2. K-DUR [Concomitant]
     Route: 048
  3. SIMVASTATIN [Concomitant]
     Route: 048
  4. FUROSEMIDE [Concomitant]
     Indication: HYPERTENSION
  5. REVLIMID [Suspect]
     Indication: MULTIPLE MYELOMA
     Route: 048
     Dates: start: 20101123, end: 20110105
  6. GABAPENTIN [Concomitant]
     Indication: NEUROPATHY PERIPHERAL
     Route: 048
  7. REVLIMID [Suspect]
     Route: 048
     Dates: start: 20110105, end: 20110125
  8. FUROSEMIDE [Concomitant]
     Route: 048
  9. PROTONIX [Concomitant]
     Route: 048

REACTIONS (6)
  - DELIRIUM [None]
  - ASTHENIA [None]
  - PULMONARY EMBOLISM [None]
  - BACTERAEMIA [None]
  - HYPOTENSION [None]
  - PNEUMONIA [None]
